FAERS Safety Report 9776138 (Version 2)
Quarter: 2013Q4

REPORT INFORMATION
  Report Type: Report from Study
  Country: AR (occurrence: AR)
  Receive Date: 20131220
  Receipt Date: 20131220
  Transmission Date: 20140711
  Serious: Yes (Other)
  Sender: FDA-Public Use
  Company Number: AR-B.I. PHARMACEUTICALS,INC./RIDGEFIELD-2013-BI-35151BI

PATIENT
  Age: 64 Year
  Sex: Male
  Weight: 60.2 kg

DRUGS (8)
  1. BI 10773 [Suspect]
     Indication: TYPE 2 DIABETES MELLITUS
     Dosage: 10 MG
     Route: 048
     Dates: start: 20111124
  2. DIPOXINE [Concomitant]
     Indication: VENTRICULAR DYSFUNCTION
     Dosage: 0.25 MG
     Route: 048
  3. ESPLERENONA [Concomitant]
     Indication: CARDIAC FAILURE
     Dosage: 25 MG
     Route: 048
     Dates: start: 20120906
  4. ACETYL SALICILIC ACID [Concomitant]
     Indication: CORONARY ARTERY DISEASE
     Dosage: 100 MG
     Route: 048
  5. ROSUVASTATIN [Concomitant]
     Indication: DYSLIPIDAEMIA
     Dosage: 10 MG
     Route: 048
     Dates: start: 20120323
  6. CARVEDILOL [Concomitant]
     Indication: HYPERTENSION
     Dosage: 10 MG
     Route: 048
     Dates: start: 20121128
  7. TAMSULOSIN [Concomitant]
     Indication: PROSTATITIS
     Dosage: 0.4 MG
     Route: 048
     Dates: start: 20130426
  8. GLIMEPIRIDE [Concomitant]
     Indication: TYPE 2 DIABETES MELLITUS
     Dosage: 3 MG
     Route: 048
     Dates: start: 20120906

REACTIONS (1)
  - Cardiac failure [Not Recovered/Not Resolved]
